FAERS Safety Report 9592311 (Version 1)
Quarter: 2013Q4

REPORT INFORMATION
  Report Type: Spontaneous
  Country: US (occurrence: None)
  Receive Date: 20131001
  Receipt Date: 20131001
  Transmission Date: 20140711
  Serious: No
  Sender: FDA-Public Use
  Company Number: 123927

PATIENT
  Age: 57 Year
  Sex: Male

DRUGS (1)
  1. DEXTRAN [Suspect]
     Indication: PRODUCT USED FOR UNKNOWN INDICATION
     Route: 042
     Dates: start: 200812, end: 200812

REACTIONS (2)
  - Renal failure acute [None]
  - Pulmonary oedema [None]
